FAERS Safety Report 8274948-4 (Version None)
Quarter: 2012Q1

REPORT INFORMATION
  Report Type: 
  Country: None (occurrence: None)
  Receive Date: 20120309
  Receipt Date: 20110623
  Transmission Date: 20120608
  Serious: Yes (Hospitalization)
  Sender: FDA-Public Use
  Company Number: TH-2011-00194

PATIENT
  Age: 42 Year
  Sex: Male

DRUGS (2)
  1. EGRIFTA [Suspect]
     Indication: LIPODYSTROPHY ACQUIRED
     Dosage: SUBCUTANEOUS, 2 IN 1 D, SUBCUTANEOUS
     Route: 058
     Dates: start: 20110617
  2. EGRIFTA [Suspect]
     Indication: LIPODYSTROPHY ACQUIRED
     Dosage: SUBCUTANEOUS, 2 IN 1 D, SUBCUTANEOUS
     Route: 058

REACTIONS (1)
  - OVERDOSE [None]
